FAERS Safety Report 9408402 (Version 1)
Quarter: 2013Q3

REPORT INFORMATION
  Report Type: Spontaneous
  Country: US (occurrence: US)
  Receive Date: 20130718
  Receipt Date: 20130718
  Transmission Date: 20140515
  Serious: No
  Sender: FDA-Public Use
  Company Number: US-BAUSCH-BL-2013-002569

PATIENT
  Age: 70 Year
  Sex: Male

DRUGS (2)
  1. LOTEMAX (LOTEPREDNOL ETABONATE OPHTHALMIC GEL 0.5%) [Suspect]
     Indication: FOREIGN BODY SENSATION IN EYES
     Dosage: ONE DROP INTO LEFT EYE TWICE DAILY
     Route: 047
     Dates: start: 20130501, end: 20130501
  2. LOTEMAX (LOTEPREDNOL ETABONATE OPHTHALMIC GEL 0.5%) [Suspect]
     Indication: OFF LABEL USE

REACTIONS (2)
  - Eye irritation [Recovered/Resolved]
  - Insomnia [Recovered/Resolved]
